FAERS Safety Report 15693814 (Version 2)
Quarter: 2019Q2

REPORT INFORMATION
  Report Type: Report from Study
  Country: PT (occurrence: PT)
  Receive Date: 20181206
  Receipt Date: 20190522
  Transmission Date: 20190711
  Serious: Yes (Life-Threatening, Other)
  Sender: FDA-Public Use
  Company Number: PT-AUROBINDO-AUR-APL-2018-052654

PATIENT

DRUGS (13)
  1. DIDANOSINE. [Suspect]
     Active Substance: DIDANOSINE
     Indication: HIV INFECTION
     Dosage: UNK
     Route: 065
  2. OXAZEPAM. [Suspect]
     Active Substance: OXAZEPAM
     Indication: PRODUCT USED FOR UNKNOWN INDICATION
     Dosage: UNK
     Route: 048
  3. METHADONE [Suspect]
     Active Substance: METHADONE HYDROCHLORIDE
     Indication: PRODUCT USED FOR UNKNOWN INDICATION
     Dosage: UNK
     Route: 048
  4. TENOFOVIR FILM COATED TABLETS [Suspect]
     Active Substance: TENOFOVIR
     Indication: HIV INFECTION
  5. DIDANOSINE. [Suspect]
     Active Substance: DIDANOSINE
     Indication: HEPATITIS C
  6. TENOFOVIR FILM COATED TABLETS [Suspect]
     Active Substance: TENOFOVIR
     Indication: HIV INFECTION CDC CATEGORY C
     Dosage: UNK
     Route: 048
  7. ZIDOVUDINE. [Suspect]
     Active Substance: ZIDOVUDINE
     Indication: HIV INFECTION CDC CATEGORY C
     Dosage: UNK
     Route: 048
  8. LOPINAVIR;RITONAVIR [Suspect]
     Active Substance: LOPINAVIR\RITONAVIR
     Indication: HIV INFECTION
  9. TENOFOVIR FILM COATED TABLETS [Suspect]
     Active Substance: TENOFOVIR
     Indication: HEPATITIS C
  10. ALCOHOL. [Suspect]
     Active Substance: ALCOHOL
     Indication: PRODUCT USED FOR UNKNOWN INDICATION
     Dosage: UNK
     Route: 065
  11. MIRTAZAPINE. [Suspect]
     Active Substance: MIRTAZAPINE
     Indication: PRODUCT USED FOR UNKNOWN INDICATION
     Dosage: UNK
     Route: 048
  12. LOPINAVIR;RITONAVIR [Suspect]
     Active Substance: LOPINAVIR\RITONAVIR
     Indication: HIV INFECTION CDC CATEGORY C
     Dosage: UNK
     Route: 048
  13. LOPINAVIR;RITONAVIR [Suspect]
     Active Substance: LOPINAVIR\RITONAVIR
     Indication: HEPATITIS C

REACTIONS (3)
  - Drug-induced liver injury [Recovered/Resolved]
  - Hepatic fibrosis [Unknown]
  - Transaminases increased [Unknown]
